FAERS Safety Report 18644314 (Version 3)
Quarter: 2021Q2

REPORT INFORMATION
  Report Type: Spontaneous
  Country: US (occurrence: US)
  Receive Date: 20201221
  Receipt Date: 20210427
  Transmission Date: 20210717
  Serious: Yes (Hospitalization, Other)
  Sender: FDA-Public Use
  Company Number: US-BIOCODEX SA-2020001751

PATIENT
  Sex: Female
  Weight: 18.8 kg

DRUGS (22)
  1. ONFI [Suspect]
     Active Substance: CLOBAZAM
     Dosage: 5 MG AM AND 10 MG PM (AS USUAL)
     Route: 065
  2. TYLENOL [Concomitant]
     Active Substance: ACETAMINOPHEN
     Indication: PAIN
     Dosage: AS NEEDED, MAX 5 DOSES IN 24 HOURS
     Route: 048
  3. MIDAZOLAM. [Concomitant]
     Active Substance: MIDAZOLAM
     Indication: PRODUCT USED FOR UNKNOWN INDICATION
     Dosage: 4 MG, QD
     Route: 045
  4. CARNITOR [Concomitant]
     Active Substance: LEVOCARNITINE
     Indication: PRODUCT USED FOR UNKNOWN INDICATION
     Dosage: 300 MG TWICE DAILY
     Route: 048
  5. CETIRIZINE [Concomitant]
     Active Substance: CETIRIZINE HYDROCHLORIDE
     Indication: HYPERSENSITIVITY
     Dosage: 2.5 MILLIGRAM EVERY 1 DAY(S) AS NEEDED
  6. CEFEPIME [Suspect]
     Active Substance: CEFEPIME HYDROCHLORIDE
     Indication: INFECTION
  7. IRON [Concomitant]
     Active Substance: IRON
     Indication: PRODUCT USED FOR UNKNOWN INDICATION
  8. ALBUTEROL                          /00139501/ [Concomitant]
     Active Substance: ALBUTEROL
     Indication: COUGH
     Dosage: 4 PUFFS EVERY 4 HOURS AS NEEDED
     Route: 055
  9. FOLIC ACID. [Concomitant]
     Active Substance: FOLIC ACID
     Dosage: 1 MG, QD
  10. DIAZEPAM. [Suspect]
     Active Substance: DIAZEPAM
     Indication: SEIZURE
     Dosage: 7.5 MG INTO THE RECTUM IN CASE OF SEIZURES
     Route: 054
  11. CETIRIZINE [Concomitant]
     Active Substance: CETIRIZINE HYDROCHLORIDE
     Indication: NASAL CONGESTION
  12. KLONOPIN [Suspect]
     Active Substance: CLONAZEPAM
     Indication: PRODUCT USED FOR UNKNOWN INDICATION
     Dosage: UNK
     Dates: start: 20201204, end: 20201208
  13. ONFI [Suspect]
     Active Substance: CLOBAZAM
     Indication: SEVERE MYOCLONIC EPILEPSY OF INFANCY
     Dosage: 1 TABLET AT BEDTIME
     Route: 048
     Dates: end: 20201208
  14. KEFLEX [Suspect]
     Active Substance: CEPHALEXIN
     Indication: INFECTION
     Dosage: 250 MG/5 ML : TAKE 10 ML 3 TIMES DAILY FOR 28 DAYS
     Route: 048
  15. MULTIVITAMINS                      /00116001/ [Concomitant]
     Active Substance: VITAMINS
  16. RIFAMPICIN [Suspect]
     Active Substance: RIFAMPIN
     Indication: INFECTION
     Dosage: 20 ML OF 200 MG TWICE DAILY
     Route: 048
     Dates: start: 20201208, end: 20210105
  17. FLUTICASONE. [Concomitant]
     Active Substance: FLUTICASONE
     Indication: PRODUCT USED FOR UNKNOWN INDICATION
     Dosage: 2 PUFFS 2 TIMES A DAY
     Route: 055
  18. OLANZAPINE. [Concomitant]
     Active Substance: OLANZAPINE
     Indication: AGITATION
     Dosage: 2.5 MG IN TOTAL AS NEEDED
     Route: 048
  19. POLYETHYLENE GLYCOL 3350. [Concomitant]
     Active Substance: POLYETHYLENE GLYCOL 3350
     Dosage: 17 MG, QD
     Route: 048
  20. DIACOMIT [Suspect]
     Active Substance: STIRIPENTOL
     Indication: SEVERE MYOCLONIC EPILEPSY OF INFANCY
     Dosage: 250 MG 3 TIMES DAILY
     Route: 048
     Dates: start: 201905
  21. VANCOMYCIN [Suspect]
     Active Substance: VANCOMYCIN
     Indication: INFECTION
  22. DEPAKOTE [Suspect]
     Active Substance: DIVALPROEX SODIUM
     Indication: PRODUCT USED FOR UNKNOWN INDICATION
     Dosage: 125 MG TWICE DAILY
     Route: 048

REACTIONS (3)
  - Drug interaction [Unknown]
  - Seizure [Unknown]
  - Infection [Unknown]
